FAERS Safety Report 9174908 (Version 3)
Quarter: 2013Q3

REPORT INFORMATION
  Report Type: Spontaneous
  Country: GB (occurrence: None)
  Receive Date: 20130315
  Receipt Date: 20130829
  Transmission Date: 20140515
  Serious: Yes (Life-Threatening, Hospitalization)
  Sender: FDA-Public Use
  Company Number: SYM-2013-01563

PATIENT
  Age: 81 Year
  Sex: Male

DRUGS (8)
  1. 5-FU (FLUOROURACIL) (INFUSION) (FLUOROURACIL) [Suspect]
     Indication: COLORECTAL CANCER METASTATIC
     Dosage: INTRAVENOUS BOLUS?
     Route: 040
     Dates: start: 20130131, end: 20130131
  2. AFLIBERCEPT (AFLIBERCEPT) (INFUSION) (AFLIBERCEPT) [Suspect]
     Indication: COLORECTAL CANCER METASTATIC
     Dosage: 304 MG, EVERY OTHER WEEK, INTRAVENOUS (NOT OTHERWISE SPECIFIED)
     Route: 042
     Dates: start: 20130214, end: 20130214
  3. IRINOTECAN (IRINOTECAN) (INFUSION) (IRINOTECAN) [Suspect]
     Indication: COLORECTAL CANCER METASTATIC
     Dosage: 340 MG, EVERY OTHER WEE, INTRAVENOUS (NOT OTHERWISE SPECIFIED)
     Route: 042
     Dates: start: 20130131, end: 20130131
  4. LEUCOVORIN (FOLINIC ACID) (INFUSION) (FOLINIC ACID) [Suspect]
     Indication: COLORECTAL CANCER METASTATIC
     Dosage: 750 MG, EVERY OTHER WEEK, INTRAVENOUS (NOT OTHERWISE SPECIFIED)
     Route: 042
     Dates: start: 20130131, end: 20130131
  5. SEROTONIN ANTAGONISTS) [Concomitant]
  6. CORTICOSTEROIDS (CORTICOSTEROIDS) [Concomitant]
  7. METOCLOPRAMIDE (METOCLOPRAMIDE HYDROCHLORIDE) METOCLOPRAMIDE HYDROCHLORIDE) [Concomitant]
  8. LOPERAMIDE (LOPERAMIDE) (LOPERAMIDE) [Concomitant]

REACTIONS (5)
  - Fall [None]
  - Convulsion [None]
  - Blood pressure increased [None]
  - Subarachnoid haemorrhage [None]
  - Posterior reversible encephalopathy syndrome [None]
